FAERS Safety Report 20951887 (Version 2)
Quarter: 2022Q2

REPORT INFORMATION
  Report Type: Spontaneous
  Country: US (occurrence: US)
  Receive Date: 20220613
  Receipt Date: 20220613
  Transmission Date: 20220721
  Serious: Yes (Other)
  Sender: FDA-Public Use
  Company Number: US-NOVARTISPH-NVSC2022US131087

PATIENT
  Sex: Male

DRUGS (6)
  1. VOTRIENT [Suspect]
     Active Substance: PAZOPANIB HYDROCHLORIDE
     Indication: Bladder cancer
     Dosage: 200 MG, QD (FOR 7 DAYS)
     Route: 048
     Dates: start: 202104
  2. VOTRIENT [Suspect]
     Active Substance: PAZOPANIB HYDROCHLORIDE
     Indication: Lung neoplasm malignant
     Dosage: 400 MG, QD (FOR 14 DAYS)
     Route: 048
     Dates: start: 202104
  3. VOTRIENT [Suspect]
     Active Substance: PAZOPANIB HYDROCHLORIDE
     Dosage: 600 MG, QD (FOR 7 DAYS)
     Route: 048
     Dates: start: 202104
  4. VOTRIENT [Suspect]
     Active Substance: PAZOPANIB HYDROCHLORIDE
     Dosage: 800 MG, QD (FOR 21 DAYS)
     Route: 048
     Dates: start: 202104
  5. VOTRIENT [Suspect]
     Active Substance: PAZOPANIB HYDROCHLORIDE
     Dosage: 800 MG, QD
     Route: 048
     Dates: start: 20220414
  6. VOTRIENT [Suspect]
     Active Substance: PAZOPANIB HYDROCHLORIDE
     Dosage: 800 MG, QD (DAILY)
     Route: 065
     Dates: start: 202204

REACTIONS (3)
  - Pancreatitis [Unknown]
  - Fatigue [Unknown]
  - Product use in unapproved indication [Unknown]
